FAERS Safety Report 25978297 (Version 3)
Quarter: 2025Q4

REPORT INFORMATION
  Report Type: Spontaneous
  Country: US (occurrence: US)
  Receive Date: 20251030
  Receipt Date: 20251211
  Transmission Date: 20260117
  Serious: No
  Sender: BRISTOL-MYERS SQUIBB COMPANY
  Company Number: US-BRISTOL-MYERS SQUIBB COMPANY-2025-145053

PATIENT
  Age: 64 Year
  Sex: Female
  Weight: 77.11 kg

DRUGS (6)
  1. POMALYST [Suspect]
     Active Substance: POMALIDOMIDE
     Indication: Plasma cell myeloma
     Dosage: DAILY FOR 21 DAYS
     Route: 048
     Dates: start: 202312
  2. POMALYST [Suspect]
     Active Substance: POMALIDOMIDE
     Dosage: DAILY FOR 21 DAYS
     Route: 048
     Dates: start: 202509
  3. POMALYST [Suspect]
     Active Substance: POMALIDOMIDE
     Route: 048
     Dates: start: 2024
  4. POMALYST [Suspect]
     Active Substance: POMALIDOMIDE
     Route: 048
  5. POMALYST [Suspect]
     Active Substance: POMALIDOMIDE
     Route: 048
  6. DECADRON [Suspect]
     Active Substance: DEXAMETHASONE
     Indication: Product used for unknown indication

REACTIONS (8)
  - Muscular weakness [Unknown]
  - Constipation [Unknown]
  - Gait disturbance [Unknown]
  - Balance disorder [Unknown]
  - Tongue discomfort [Unknown]
  - Blood immunoglobulin G increased [Unknown]
  - Blood immunoglobulin A increased [Unknown]
  - Blood immunoglobulin M increased [Unknown]

NARRATIVE: CASE EVENT DATE: 20231201
